FAERS Safety Report 25430958 (Version 2)
Quarter: 2025Q2

REPORT INFORMATION
  Report Type: Report from Study
  Country: US (occurrence: US)
  Receive Date: 20250612
  Receipt Date: 20250623
  Transmission Date: 20250717
  Serious: Yes (Hospitalization)
  Sender: ABBVIE
  Company Number: US-ABBVIE-6323383

PATIENT
  Age: 82 Year
  Sex: Female

DRUGS (1)
  1. SAVELLA [Suspect]
     Active Substance: MILNACIPRAN HYDROCHLORIDE
     Indication: Multiple fractures
     Dosage: RPH:AAC/N HUNNELL
     Route: 048
     Dates: start: 2009

REACTIONS (1)
  - Cardiac disorder [Unknown]
